FAERS Safety Report 14997140 (Version 1)
Quarter: 2018Q2

REPORT INFORMATION
  Report Type: Spontaneous
  Country: US (occurrence: US)
  Receive Date: 20180611
  Receipt Date: 20180611
  Transmission Date: 20180711
  Serious: No
  Sender: FDA-Public Use
  Company Number: US-DUCHESNAY INC.-2049247

PATIENT
  Age: 49 Year
  Sex: Female

DRUGS (1)
  1. OSPHENA [Suspect]
     Active Substance: OSPEMIFENE
     Indication: VULVOVAGINAL DRYNESS
     Route: 048
     Dates: start: 20180521

REACTIONS (2)
  - Product use in unapproved indication [Not Recovered/Not Resolved]
  - Urinary tract discomfort [Not Recovered/Not Resolved]

NARRATIVE: CASE EVENT DATE: 20180602
